FAERS Safety Report 4650769-6 (Version None)
Quarter: 2005Q2

REPORT INFORMATION
  Report Type: 
  Country: None (occurrence: None)
  Receive Date: 20050503
  Receipt Date: 20050425
  Transmission Date: 20051028
  Serious: Yes (Life-Threatening)
  Sender: FDA-Public Use
  Company Number: 200513706GDDC

PATIENT
  Age: 61 Year
  Sex: Female
  Weight: 66 kg

DRUGS (4)
  1. ARAVA [Suspect]
     Indication: RHEUMATOID ARTHRITIS
     Route: 048
     Dates: start: 20020101
  2. PREMPAK-C [Concomitant]
     Route: 048
  3. AMITRIPTYLINE HCL TAB [Concomitant]
     Route: 048
  4. ARTHROTEC [Concomitant]
     Dosage: DOSE: UNK

REACTIONS (1)
  - CORONARY ARTERY THROMBOSIS [None]
